FAERS Safety Report 12816235 (Version 3)
Quarter: 2023Q1

REPORT INFORMATION
  Report Type: Spontaneous
  Country: US (occurrence: US)
  Receive Date: 20161005
  Receipt Date: 20230314
  Transmission Date: 20230418
  Serious: Yes (Other)
  Sender: FDA-Public Use
  Company Number: US-AMGEN-USASP2015121014

PATIENT
  Age: 64 Year
  Sex: Female

DRUGS (2)
  1. PROLIA [Suspect]
     Active Substance: DENOSUMAB
     Indication: Osteoporosis postmenopausal
     Dosage: 60 MILLIGRAM
     Route: 065
     Dates: start: 2014
  2. ADVIL PM                           /05810501/ [Concomitant]
     Dosage: UNK UNK, QD

REACTIONS (12)
  - Spinal fracture [Unknown]
  - Hypersensitivity [Unknown]
  - Sinus disorder [Unknown]
  - Weight abnormal [Unknown]
  - Tooth resorption [Unknown]
  - Feeling abnormal [Unknown]
  - Stress [Unknown]
  - Immune system disorder [Unknown]
  - Tooth disorder [Unknown]
  - Insomnia [Not Recovered/Not Resolved]
  - Swelling face [Not Recovered/Not Resolved]
  - Urticaria [Unknown]

NARRATIVE: CASE EVENT DATE: 20150101
